FAERS Safety Report 7316102-6 (Version None)
Quarter: 2011Q1

REPORT INFORMATION
  Report Type: 
  Country: None (occurrence: None)
  Receive Date: 20110225
  Receipt Date: 20110214
  Transmission Date: 20110831
  Serious: Yes (Other)
  Sender: FDA-Public Use
  Company Number: US-ELI_LILLY_AND_COMPANY-US201102003967

PATIENT
  Sex: Female
  Weight: 97.052 kg

DRUGS (2)
  1. BYETTA [Suspect]
     Indication: TYPE 2 DIABETES MELLITUS
     Dosage: 5 UG, 2/D
     Route: 058
  2. BYETTA [Suspect]
     Dosage: 5 UG, 2/D
     Route: 058
     Dates: end: 20110208

REACTIONS (6)
  - RASH ERYTHEMATOUS [None]
  - BLOOD GLUCOSE DECREASED [None]
  - RASH PRURITIC [None]
  - THROAT TIGHTNESS [None]
  - BLOOD GLUCOSE INCREASED [None]
  - OVERDOSE [None]
